FAERS Safety Report 24235669 (Version 1)
Quarter: 2024Q3

REPORT INFORMATION
  Report Type: Spontaneous
  Country: US (occurrence: US)
  Receive Date: 20240822
  Receipt Date: 20240822
  Transmission Date: 20241017
  Serious: No
  Sender: ACCORD
  Company Number: US-Accord-368892

PATIENT
  Age: 69 Year
  Sex: Female
  Weight: 90.7 kg

DRUGS (1)
  1. ANASTROZOLE [Suspect]
     Active Substance: ANASTROZOLE
     Indication: Breast cancer
     Dosage: 1 DAILY
     Route: 048
     Dates: start: 20230315, end: 20230614

REACTIONS (2)
  - Arthralgia [Unknown]
  - Pain in extremity [Unknown]
